FAERS Safety Report 12356539 (Version 2)
Quarter: 2016Q2

REPORT INFORMATION
  Report Type: Spontaneous
  Country: JP (occurrence: JP)
  Receive Date: 20160511
  Receipt Date: 20160613
  Transmission Date: 20160815
  Serious: No
  Sender: FDA-Public Use
  Company Number: JP-ELI_LILLY_AND_COMPANY-JP201605003634

PATIENT
  Age: 80 Year
  Sex: Male

DRUGS (3)
  1. ERBITUX [Suspect]
     Active Substance: CETUXIMAB
     Indication: NASAL SINUS CANCER
     Dosage: UNK UNK, UNKNOWN
     Route: 065
     Dates: start: 20160421
  2. PACLITAXEL. [Suspect]
     Active Substance: PACLITAXEL
     Indication: NASAL SINUS CANCER
     Dosage: UNK UNK, UNKNOWN
     Route: 042
     Dates: start: 20160421, end: 20160421
  3. CARBOPLATIN. [Suspect]
     Active Substance: CARBOPLATIN
     Indication: NASAL SINUS CANCER
     Dosage: UNK UNK, UNKNOWN
     Route: 065
     Dates: start: 20160421, end: 20160421

REACTIONS (4)
  - White blood cell count decreased [Recovering/Resolving]
  - Blood iron decreased [Unknown]
  - Glossodynia [Unknown]
  - Neutrophil count decreased [Recovering/Resolving]

NARRATIVE: CASE EVENT DATE: 20160427
